FAERS Safety Report 23876878 (Version 2)
Quarter: 2024Q2

REPORT INFORMATION
  Report Type: Spontaneous
  Country: CZ (occurrence: CZ)
  Receive Date: 20240521
  Receipt Date: 20240614
  Transmission Date: 20240716
  Serious: Yes (Life-Threatening, Other)
  Sender: FDA-Public Use
  Company Number: None

PATIENT
  Age: 69 Year
  Sex: Female
  Weight: 115 kg

DRUGS (15)
  1. ACETAMINOPHEN [Suspect]
     Active Substance: ACETAMINOPHEN
     Indication: Pain
     Dosage: ON APRIL 8TH, ONCE A DAY, ON APRIL 9TH 4 TIMES A DAY (EVERY 6 HOURS), ON APRIL 10TH ONCE A DAY
     Route: 042
     Dates: start: 20240408, end: 20240410
  2. OXAZEPAM [Concomitant]
     Active Substance: OXAZEPAM
     Indication: Hypnotherapy
     Dosage: 1 TIME IN THE EVENING
     Route: 048
     Dates: start: 20240414
  3. ZALDIAR [Suspect]
     Active Substance: ACETAMINOPHEN\TRAMADOL HYDROCHLORIDE
     Indication: Pain
     Dosage: APRIL 14TH, TOTAL 4 TABLETS,  APRIL 15TH, ONE TABLET (37,5/325 MG).
     Route: 048
     Dates: start: 20240414, end: 20240415
  4. MORPHINE [Concomitant]
     Active Substance: MORPHINE
     Indication: Pain
     Dosage: 1/2 AMPULE IN THE EVENING
     Route: 042
     Dates: start: 20240409
  5. FENTANYL [Concomitant]
     Active Substance: FENTANYL\FENTANYL CITRATE
     Indication: Pain
     Route: 003
     Dates: start: 20240408
  6. ARCHIFAR [Concomitant]
     Indication: Cellulitis
     Route: 042
     Dates: start: 20240408
  7. ELECTROLYTES NOS [Concomitant]
     Active Substance: ELECTROLYTES NOS
     Indication: Fluid replacement
     Dosage: ONCE EVERY 24 HOURS
     Route: 042
     Dates: start: 20240408
  8. PREGABALIN [Concomitant]
     Active Substance: PREGABALIN
     Indication: Pain
     Dosage: 1-0-0
     Route: 048
     Dates: start: 20240408
  9. NEBIVOLOL [Concomitant]
     Active Substance: NEBIVOLOL
     Indication: Hypertension
     Dosage: 1/2-0-0
     Route: 048
     Dates: start: 20240408
  10. LAMICTAL [Concomitant]
     Active Substance: LAMOTRIGINE
     Indication: Epilepsy
     Dosage: 1-0-1
     Route: 048
     Dates: start: 20240408
  11. MIRTAZAPINE [Concomitant]
     Active Substance: MIRTAZAPINE
     Indication: Hypnotherapy
     Dosage: 1 TIME FOR THE NIGHT
     Route: 048
     Dates: start: 20240408
  12. ENOXAPARIN SODIUM [Concomitant]
     Active Substance: ENOXAPARIN SODIUM
     Indication: Prophylaxis
     Dosage: 0,2 ML EVERY 24H
     Route: 058
     Dates: start: 20240408
  13. ACETAMINOPHEN [Suspect]
     Active Substance: ACETAMINOPHEN
     Indication: Pain
     Dosage: 3 TIMES A DAY (0-1-1-1N)
     Route: 048
     Dates: start: 20240410, end: 20240415
  14. PANTOPRAZOLE [Concomitant]
     Active Substance: PANTOPRAZOLE
     Indication: Gastrointestinal disorder
     Route: 042
     Dates: start: 20240408
  15. TRAMADOL [Concomitant]
     Active Substance: TRAMADOL\TRAMADOL HYDROCHLORIDE
     Indication: Pain
     Route: 042
     Dates: start: 20240408

REACTIONS (1)
  - Metabolic acidosis [Recovering/Resolving]

NARRATIVE: CASE EVENT DATE: 20240415
